FAERS Safety Report 4875597-8 (Version None)
Quarter: 2006Q1

REPORT INFORMATION
  Report Type: 
  Country: None (occurrence: None)
  Receive Date: 20060109
  Receipt Date: 20041104
  Transmission Date: 20060701
  Serious: Yes (Hospitalization, Disabling)
  Sender: FDA-Public Use
  Company Number: US-ROCHE-385632

PATIENT
  Age: 21 Year
  Sex: Male
  Weight: 102.1 kg

DRUGS (8)
  1. ACCUTANE [Suspect]
     Indication: ACNE
     Route: 048
     Dates: start: 19910315, end: 19910610
  2. ACCUTANE [Suspect]
     Route: 048
     Dates: start: 19900702, end: 19910315
  3. ACCUTANE [Suspect]
     Route: 048
     Dates: start: 19910610
  4. ACCUTANE [Suspect]
     Route: 048
     Dates: start: 19920921, end: 19921123
  5. ACCUTANE [Suspect]
     Route: 048
     Dates: start: 19921123, end: 19921221
  6. ACCUTANE [Suspect]
     Route: 048
     Dates: start: 19921221
  7. ACCUTANE [Suspect]
     Route: 048
     Dates: start: 19970217
  8. ACCUTANE [Suspect]
     Route: 048
     Dates: end: 19970714

REACTIONS (50)
  - ANGINA PECTORIS [None]
  - ANGIOPATHY [None]
  - ANXIETY [None]
  - APPENDICITIS [None]
  - ARTHRITIS [None]
  - AUTOIMMUNE DISORDER [None]
  - BACK PAIN [None]
  - BLOOD CHOLESTEROL INCREASED [None]
  - BLOOD TRIGLYCERIDES INCREASED [None]
  - BONE DISORDER [None]
  - CEREBRAL HAEMATOMA [None]
  - CHOLECYSTECTOMY [None]
  - CHOLECYSTITIS [None]
  - CHOLELITHIASIS [None]
  - CLAVICLE FRACTURE [None]
  - CLOSED HEAD INJURY [None]
  - CLOSTRIDIAL INFECTION [None]
  - COLITIS [None]
  - COLITIS ULCERATIVE [None]
  - COLON CANCER [None]
  - CONTUSION [None]
  - DEPRESSION [None]
  - DRUG HYPERSENSITIVITY [None]
  - DRUG INEFFECTIVE [None]
  - DRY SKIN [None]
  - EAR INFECTION [None]
  - GALLBLADDER NECROSIS [None]
  - GASTROINTESTINAL DISORDER [None]
  - HEPATIC STEATOSIS [None]
  - HERNIA [None]
  - HYPERTENSION [None]
  - ILL-DEFINED DISORDER [None]
  - INFLAMMATORY BOWEL DISEASE [None]
  - INTERVERTEBRAL DISC DEGENERATION [None]
  - INTERVERTEBRAL DISC PROTRUSION [None]
  - INTESTINAL HAEMORRHAGE [None]
  - LIMB INJURY [None]
  - MARITAL PROBLEM [None]
  - MULTI-ORGAN DISORDER [None]
  - MUSCULOSKELETAL DISORDER [None]
  - NECK PAIN [None]
  - ONYCHOMYCOSIS [None]
  - PANCREATITIS [None]
  - PNEUMOTHORAX [None]
  - PROCTITIS [None]
  - RECTAL HAEMORRHAGE [None]
  - ROAD TRAFFIC ACCIDENT [None]
  - STRESS [None]
  - TESTICULAR DISORDER [None]
  - VARICOCELE [None]
